FAERS Safety Report 16423083 (Version 2)
Quarter: 2019Q4

REPORT INFORMATION
  Report Type: Report from Study
  Country: CA (occurrence: CA)
  Receive Date: 20190612
  Receipt Date: 20191127
  Transmission Date: 20200122
  Serious: Yes (Other)
  Sender: FDA-Public Use
  Company Number: CA-JNJFOC-20190519121

PATIENT
  Age: 40 Year
  Sex: Male

DRUGS (4)
  1. ESCITALOPRAM [Concomitant]
     Active Substance: ESCITALOPRAM OXALATE
  2. REMICADE [Suspect]
     Active Substance: INFLIXIMAB
     Indication: CROHN^S DISEASE
     Route: 042
  3. IMURAN [Concomitant]
     Active Substance: AZATHIOPRINE
     Dates: end: 2019
  4. ATIVAN [Concomitant]
     Active Substance: LORAZEPAM

REACTIONS (5)
  - Diarrhoea haemorrhagic [Recovered/Resolved]
  - Colectomy [Unknown]
  - Vomiting [Recovered/Resolved]
  - Large intestinal ulcer [Unknown]
  - Asthenia [Not Recovered/Not Resolved]

NARRATIVE: CASE EVENT DATE: 2017
